FAERS Safety Report 23583033 (Version 1)
Quarter: 2024Q1

REPORT INFORMATION
  Report Type: Spontaneous
  Country: GB (occurrence: GB)
  Receive Date: 20240301
  Receipt Date: 20240301
  Transmission Date: 20240410
  Serious: No
  Sender: FDA-Public Use
  Company Number: None

PATIENT
  Age: 77 Year
  Sex: Male
  Weight: 68 kg

DRUGS (1)
  1. FINASTERIDE [Suspect]
     Active Substance: FINASTERIDE
     Indication: Prostatomegaly
     Dosage: 5 MILLIGRAM, QD, TABLET (5 MG ONCE A DAY)
     Route: 065
     Dates: start: 20230811, end: 20230907

REACTIONS (2)
  - Tinnitus [Not Recovered/Not Resolved]
  - Depressed mood [Recovered/Resolved]
